FAERS Safety Report 22026693 (Version 1)
Quarter: 2023Q1

REPORT INFORMATION
  Report Type: Report from Study
  Country: HN (occurrence: HN)
  Receive Date: 20230223
  Receipt Date: 20230223
  Transmission Date: 20230418
  Serious: Yes (Hospitalization, Other)
  Sender: FDA-Public Use
  Company Number: HN-002147023-NVSC2023HN038914

PATIENT
  Sex: Male

DRUGS (2)
  1. SACUBITRIL\VALSARTAN [Suspect]
     Active Substance: SACUBITRIL\VALSARTAN
     Indication: Cardiac failure
     Dosage: 1 DOSAGE FORM, BID (50 MG) (EVERY 12 HOURS)
     Route: 048
  2. SACUBITRIL\VALSARTAN [Suspect]
     Active Substance: SACUBITRIL\VALSARTAN
     Dosage: 0.5 DOSAGE FORM, BID (100 MG) (EVERY 12 HOURS) (7 AM AND 7 PM)
     Route: 048

REACTIONS (6)
  - COVID-19 [Unknown]
  - Cardiac failure [Unknown]
  - Gait inability [Unknown]
  - Asthenia [Unknown]
  - Product availability issue [Unknown]
  - Wrong technique in product usage process [Unknown]
